FAERS Safety Report 6122850-6 (Version None)
Quarter: 2009Q1

REPORT INFORMATION
  Report Type: 
  Country: None (occurrence: None)
  Receive Date: 20090318
  Receipt Date: 20090311
  Transmission Date: 20090719
  Serious: Yes (Other)
  Sender: FDA-Public Use
  Company Number: B0557498A

PATIENT
  Age: 56 Year
  Sex: Male
  Weight: 78 kg

DRUGS (4)
  1. LAMICTAL [Suspect]
     Indication: BIPOLAR DISORDER
     Dosage: 100MG PER DAY
  2. RIVOTRIL [Concomitant]
     Indication: SEDATION
     Dosage: 2TAB PER DAY
     Dates: start: 20060101
  3. LIPITOR ATORVASTATINE [Concomitant]
     Dosage: 1TAB PER DAY
     Dates: start: 20060101
  4. MIRTAZAPINE [Concomitant]
     Indication: SLEEP DISORDER
     Dosage: 30MG PER DAY
     Dates: start: 20040101

REACTIONS (10)
  - BLOOD CREATININE DECREASED [None]
  - DIARRHOEA [None]
  - ERYTHEMA [None]
  - HAEMATURIA [None]
  - HYPERSENSITIVITY [None]
  - LYMPHADENOPATHY [None]
  - PYREXIA [None]
  - RED BLOOD CELL COUNT DECREASED [None]
  - SKIN DISORDER [None]
  - STOMATITIS [None]
